FAERS Safety Report 24572191 (Version 1)
Quarter: 2024Q4

REPORT INFORMATION
  Report Type: Spontaneous
  Country: US (occurrence: US)
  Receive Date: 20241101
  Receipt Date: 20241101
  Transmission Date: 20250115
  Serious: Yes (Other)
  Sender: PFIZER
  Company Number: US-PFIZER INC-PV202400137389

PATIENT
  Age: 27 Year
  Sex: Female

DRUGS (3)
  1. NURTEC ODT [Suspect]
     Active Substance: RIMEGEPANT SULFATE
     Indication: Migraine
     Dosage: 75 MG, AS NEEDED
     Route: 048
  2. NURTEC ODT [Suspect]
     Active Substance: RIMEGEPANT SULFATE
     Dosage: TAKE 1 TABLET (75 MG) BY MOUTH DAILY AS NEEDED
     Route: 048
  3. NALTREXONE [Concomitant]
     Active Substance: NALTREXONE
     Dosage: UNK

REACTIONS (9)
  - Endometriosis [Unknown]
  - Sleep disorder [Unknown]
  - Poor quality sleep [Unknown]
  - Postural orthostatic tachycardia syndrome [Unknown]
  - Anxiety [Unknown]
  - Tachycardia [Unknown]
  - Nasal obstruction [Recovering/Resolving]
  - Panic attack [Unknown]
  - Prescribed overdose [Unknown]
